FAERS Safety Report 11094279 (Version 3)
Quarter: 2015Q2

REPORT INFORMATION
  Report Type: Spontaneous
  Country: US (occurrence: US)
  Receive Date: 20150506
  Receipt Date: 20150519
  Transmission Date: 20150821
  Serious: Yes (Hospitalization, Other)
  Sender: FDA-Public Use
  Company Number: US-GLAXOSMITHKLINE-US2015GSK032930

PATIENT
  Sex: Male

DRUGS (7)
  1. LISINOPRIL. [Suspect]
     Active Substance: LISINOPRIL
     Indication: PULSE ABNORMAL
  2. FUROSEMIDE. [Suspect]
     Active Substance: FUROSEMIDE
     Indication: PRODUCT USED FOR UNKNOWN INDICATION
     Dosage: UNK
  3. COREG [Suspect]
     Active Substance: CARVEDILOL
     Indication: PRODUCT USED FOR UNKNOWN INDICATION
     Dosage: 80 MG, UNK
     Dates: end: 201407
  4. ASPIRIN. [Concomitant]
     Active Substance: ASPIRIN
  5. POTASSIUM [Concomitant]
     Active Substance: POTASSIUM
  6. LISINOPRIL. [Suspect]
     Active Substance: LISINOPRIL
     Indication: BLOOD PRESSURE ABNORMAL
     Dosage: UNK
     Dates: start: 201407
  7. SPIRONOLACTONE. [Suspect]
     Active Substance: SPIRONOLACTONE
     Indication: PRODUCT USED FOR UNKNOWN INDICATION
     Dosage: 25 MG, UNK
     Dates: end: 201503

REACTIONS (24)
  - Fracture [Not Recovered/Not Resolved]
  - Abdominal pain upper [Unknown]
  - Back pain [Unknown]
  - Adrenal disorder [Unknown]
  - Muscle spasms [Unknown]
  - Vertebral lesion [Not Recovered/Not Resolved]
  - Bone cancer metastatic [Unknown]
  - Blood potassium increased [Unknown]
  - Cholelithiasis [Unknown]
  - Neoplasm [Unknown]
  - Gallbladder disorder [Unknown]
  - Constipation [Unknown]
  - Dyspnoea [Unknown]
  - Yellow skin [Unknown]
  - Fatigue [Unknown]
  - Heart rate decreased [Recovering/Resolving]
  - Muscle twitching [Unknown]
  - Breast pain [Unknown]
  - Cough [Unknown]
  - Blood potassium decreased [Unknown]
  - Single functional kidney [Unknown]
  - Decreased appetite [Unknown]
  - Hypotension [Recovering/Resolving]
  - Chills [Unknown]

NARRATIVE: CASE EVENT DATE: 2014
